FAERS Safety Report 5463005-8 (Version None)
Quarter: 2007Q3

REPORT INFORMATION
  Report Type: 
  Country: None (occurrence: None)
  Receive Date: 20070920
  Receipt Date: 20070911
  Transmission Date: 20080115
  Serious: Yes (Life-Threatening, Hospitalization)
  Sender: FDA-Public Use
  Company Number: FR-AMGEN-UK235075

PATIENT
  Sex: Female

DRUGS (11)
  1. NEULASTA [Suspect]
     Indication: CHEMOTHERAPY
     Route: 065
     Dates: start: 20070301, end: 20070518
  2. GLUCOPHAGE [Concomitant]
     Route: 048
  3. GLYBURIDE [Concomitant]
     Route: 048
  4. LIPANTHYL - SLOW RELEASE [Concomitant]
     Route: 048
  5. LEVOTHYROX [Concomitant]
     Route: 048
  6. SOTALOL HCL [Concomitant]
     Route: 048
  7. LORAZEPAM [Concomitant]
     Route: 048
  8. DURAGESIC-100 [Concomitant]
  9. ACTISKENAN [Concomitant]
  10. ETOPOSIDE [Concomitant]
     Dates: start: 20070316
  11. CISPLATIN [Concomitant]
     Dates: start: 20070316

REACTIONS (4)
  - BONE MARROW FAILURE [None]
  - DRUG INEFFECTIVE [None]
  - NEUROTOXICITY [None]
  - THROMBOCYTOPENIA [None]
